FAERS Safety Report 14756949 (Version 6)
Quarter: 2018Q2

REPORT INFORMATION
  Report Type: Report from Study
  Country: CO (occurrence: CO)
  Receive Date: 20180413
  Receipt Date: 20180507
  Transmission Date: 20180711
  Serious: Yes (Death, Hospitalization, Other)
  Sender: FDA-Public Use
  Company Number: PHHY2015CO102003

PATIENT
  Age: 56 Year
  Sex: Female
  Weight: 42 kg

DRUGS (5)
  1. MORPHINE [Suspect]
     Active Substance: MORPHINE
     Indication: PAIN
     Dosage: 10 GTT, Q6H (EVERY 06 HOURS)
     Route: 048
  2. AFINITOR [Suspect]
     Active Substance: EVEROLIMUS
     Indication: BREAST CANCER METASTATIC
     Dosage: 10 MG, QD
     Route: 048
     Dates: start: 20150630, end: 20170307
  3. CORYOL [Suspect]
     Active Substance: CARVEDILOL
     Indication: HYPERTENSION
     Route: 065
  4. EXEMESTANE. [Concomitant]
     Active Substance: EXEMESTANE
     Indication: BREAST CANCER
     Dosage: 25 MG, QD
     Route: 048
     Dates: start: 20150630
  5. AFINITOR [Suspect]
     Active Substance: EVEROLIMUS
     Dosage: 10 MG, QD
     Route: 048
     Dates: start: 201705, end: 201803

REACTIONS (21)
  - Femur fracture [Not Recovered/Not Resolved]
  - Liver disorder [Unknown]
  - Dyspnoea [Unknown]
  - Hand fracture [Unknown]
  - Eating disorder [Unknown]
  - Gait disturbance [Unknown]
  - Dysuria [Unknown]
  - Pain in extremity [Not Recovered/Not Resolved]
  - Rash [Unknown]
  - Pulmonary embolism [Fatal]
  - Constipation [Unknown]
  - Depression [Unknown]
  - Decreased appetite [Unknown]
  - General physical health deterioration [Fatal]
  - Inflammation [Unknown]
  - Urticaria [Unknown]
  - Metastases to bone [Unknown]
  - Malaise [Unknown]
  - Synovial cyst [Unknown]
  - Chest pain [Not Recovered/Not Resolved]
  - Arthralgia [Unknown]

NARRATIVE: CASE EVENT DATE: 20170216
